FAERS Safety Report 9830260 (Version 1)
Quarter: 2014Q1

REPORT INFORMATION
  Report Type: Spontaneous
  Country: US (occurrence: US)
  Receive Date: 20140120
  Receipt Date: 20140120
  Transmission Date: 20141002
  Serious: Yes (Other)
  Sender: FDA-Public Use
  Company Number: US-SA-2014SA007201

PATIENT
  Sex: 0

DRUGS (1)
  1. MULTAQ [Suspect]
     Route: 048
     Dates: start: 20140115

REACTIONS (1)
  - Atrial fibrillation [Unknown]
